FAERS Safety Report 7774317-7 (Version None)
Quarter: 2011Q3

REPORT INFORMATION
  Report Type: 
  Country: None (occurrence: None)
  Receive Date: 20110923
  Receipt Date: 20110913
  Transmission Date: 20111222
  Serious: Yes (Life-Threatening, Hospitalization)
  Sender: FDA-Public Use
  Company Number: CH-SANOFI-AVENTIS-2011SA060024

PATIENT
  Age: 78 Year
  Sex: Male
  Weight: 100 kg

DRUGS (3)
  1. MULTAQ [Suspect]
     Route: 048
     Dates: start: 20110622, end: 20110720
  2. MARCUMAR [Concomitant]
     Route: 048
  3. METOPROLOL SUCCINATE [Concomitant]
     Route: 065

REACTIONS (2)
  - MYOCARDIAL INFARCTION [None]
  - UNDERDOSE [None]
